FAERS Safety Report 5024559-9 (Version None)
Quarter: 2006Q2

REPORT INFORMATION
  Report Type: 
  Country: None (occurrence: None)
  Receive Date: 20060608
  Receipt Date: 20060608
  Transmission Date: 20061013
  Serious: Yes (Other)
  Sender: FDA-Public Use
  Company Number: None

PATIENT
  Age: 69 Year
  Sex: Male
  Weight: 112.4921 kg

DRUGS (10)
  1. ATENOLOL AND CHLORTHALIDONE [Suspect]
     Indication: HYPERTENSION
     Dosage: 12.5MG/50MG (1/2 TAB) PO
     Route: 048
     Dates: start: 20051223, end: 20060201
  2. LISINOPRIL [Concomitant]
  3. MINOXIDIL [Concomitant]
  4. FENOFIBRATE [Concomitant]
  5. NEXIUM [Concomitant]
  6. ATENOLOL [Concomitant]
  7. CLOBETASOL PROPIONATE [Concomitant]
  8. INSULIN [Concomitant]
  9. MICONAZOLE [Concomitant]
  10. SIMVASTATIN [Concomitant]

REACTIONS (2)
  - PHOTOSENSITIVITY REACTION [None]
  - SUNBURN [None]
